FAERS Safety Report 7429125-3 (Version None)
Quarter: 2011Q2

REPORT INFORMATION
  Report Type: 
  Country: None (occurrence: None)
  Receive Date: 20110421
  Receipt Date: 20110418
  Transmission Date: 20111010
  Serious: Yes (Hospitalization)
  Sender: FDA-Public Use
  Company Number: US-B.I. PHARMACEUTICALS,INC./RIDGEFIELD-2011-BP-08119BP

PATIENT
  Sex: Female
  Weight: 64.86 kg

DRUGS (7)
  1. CYMBALTA [Concomitant]
  2. PRADAXA [Suspect]
     Indication: ATRIAL FIBRILLATION
     Dosage: 300 MG
     Dates: start: 20110219, end: 20110305
  3. SINEMET [Concomitant]
  4. PROPYLTHIOURACIL [Concomitant]
  5. RISPERDAL [Concomitant]
  6. CLARITIN [Concomitant]
     Dosage: 10 MG
  7. NULACIN [Concomitant]

REACTIONS (3)
  - COLON OPERATION [None]
  - GASTROINTESTINAL HAEMORRHAGE [None]
  - POLYP [None]
